FAERS Safety Report 7023788-2 (Version None)
Quarter: 2010Q4

REPORT INFORMATION
  Report Type: 
  Country: None (occurrence: None)
  Receive Date: 20101001
  Receipt Date: 20100930
  Transmission Date: 20110411
  Serious: Yes (Other)
  Sender: FDA-Public Use
  Company Number: US-RB-014037-10

PATIENT
  Age: 38 Year
  Sex: Female

DRUGS (1)
  1. DELSYM [Suspect]
     Dosage: PATIENT MAY HAVE BEEN TAKING 3 OR 4 BOXES PER WEEK.
     Route: 048
     Dates: start: 20100101

REACTIONS (1)
  - DRUG ABUSE [None]
